FAERS Safety Report 13616168 (Version 2)
Quarter: 2017Q2

REPORT INFORMATION
  Report Type: Spontaneous
  Country: US (occurrence: US)
  Receive Date: 20170606
  Receipt Date: 20170622
  Transmission Date: 20170830
  Serious: Yes (Hospitalization)
  Sender: FDA-Public Use
  Company Number: US-UNITED THERAPEUTICS-UNT-2017-008169

PATIENT
  Age: 74 Year
  Sex: Male
  Weight: 70.2 kg

DRUGS (2)
  1. REMODULIN [Suspect]
     Active Substance: TREPROSTINIL
     Indication: PULMONARY ARTERIAL HYPERTENSION
     Dosage: 0.0485 ?G/KG, CONTINUING
     Route: 041
     Dates: start: 20150522
  2. COUMADIN [Concomitant]
     Active Substance: WARFARIN SODIUM
     Indication: PRODUCT USED FOR UNKNOWN INDICATION

REACTIONS (6)
  - Cardiomegaly [Unknown]
  - Dyspnoea [Unknown]
  - Confusional state [Unknown]
  - Gait disturbance [Unknown]
  - Lung disorder [Unknown]
  - Hypoxia [Unknown]

NARRATIVE: CASE EVENT DATE: 2017
